FAERS Safety Report 7241056-0 (Version None)
Quarter: 2011Q1

REPORT INFORMATION
  Report Type: 
  Country: None (occurrence: None)
  Receive Date: 20110124
  Receipt Date: 20110114
  Transmission Date: 20110831
  Serious: Yes (Other)
  Sender: FDA-Public Use
  Company Number: AU-ACTELION-A-CH2011-44024

PATIENT
  Age: 76 Year
  Sex: Female

DRUGS (1)
  1. TRACLEER [Suspect]
     Indication: PULMONARY ARTERIAL HYPERTENSION
     Dosage: UNK , UNK
     Route: 048

REACTIONS (6)
  - TELANGIECTASIA [None]
  - FLUSHING [None]
  - CHANGE OF BOWEL HABIT [None]
  - ERYTHEMA [None]
  - PARAESTHESIA [None]
  - RASH MACULAR [None]
